FAERS Safety Report 5761336-5 (Version None)
Quarter: 2008Q2

REPORT INFORMATION
  Report Type: 
  Country: None (occurrence: None)
  Receive Date: 20080606
  Receipt Date: 20080604
  Transmission Date: 20081010
  Serious: No
  Sender: FDA-Public Use
  Company Number: GB-ROCHE-553867

PATIENT
  Sex: Female
  Weight: 65 kg

DRUGS (2)
  1. ISOTRETINOIN [Suspect]
     Indication: DRUG USE FOR UNKNOWN INDICATION
     Route: 048
     Dates: start: 20080131, end: 20080315
  2. MINOCIN [Concomitant]
     Route: 048
     Dates: start: 20071001, end: 20080101

REACTIONS (1)
  - ABORTION INDUCED [None]
